FAERS Safety Report 4963528-1 (Version None)
Quarter: 2006Q1

REPORT INFORMATION
  Report Type: 
  Country: None (occurrence: None)
  Receive Date: 20060330
  Receipt Date: 20060317
  Transmission Date: 20060701
  Serious: Yes (Other)
  Sender: FDA-Public Use
  Company Number: 02100-JPN-06-0022

PATIENT
  Age: 69 Year
  Sex: Male

DRUGS (13)
  1. CILOSTAZOL [Suspect]
     Indication: CEREBRAL INFARCTION
     Dosage: 200 MG, ORAL
     Route: 048
     Dates: start: 20041025, end: 20050425
  2. ASPIRIN [Suspect]
     Dosage: 100 MG ORAL
     Route: 048
     Dates: start: 20041026, end: 20050425
  3. EDARAVONE [Concomitant]
  4. FAMOTIDINE [Concomitant]
  5. ARGATROBAN [Concomitant]
  6. AZELASTINE HYDROCHLORIDE [Concomitant]
  7. CLARITHROMYCIN [Concomitant]
  8. LAFUTIDINE [Concomitant]
  9. PRAVASTATIN SODIUM [Concomitant]
  10. FUDOSTEINE [Concomitant]
  11. MAGNESIUM OXIDE [Concomitant]
  12. SENNOSIDE [Concomitant]
  13. AMLODIPINE BESYLATE [Concomitant]

REACTIONS (1)
  - PULMONARY ALVEOLAR HAEMORRHAGE [None]
